FAERS Safety Report 4828081-1 (Version None)
Quarter: 2005Q4

REPORT INFORMATION
  Report Type: 
  Country: None (occurrence: None)
  Receive Date: 20051110
  Receipt Date: 20051103
  Transmission Date: 20060501
  Serious: Yes (Hospitalization, Disabling, Other)
  Sender: FDA-Public Use
  Company Number: 200513541GDS

PATIENT
  Age: 30 Year
  Sex: Female

DRUGS (2)
  1. AVELOX [Suspect]
     Indication: PNEUMONIA
     Dosage: INTRAVENOUS
     Route: 042
     Dates: start: 20050827, end: 20050901
  2. AVELOX [Suspect]
     Indication: PNEUMONIA
     Dosage: 400 MG, QD, ORAL
     Route: 048
     Dates: start: 20050901, end: 20050910

REACTIONS (3)
  - NEUROPATHY PERIPHERAL [None]
  - PAIN [None]
  - WEIGHT DECREASED [None]
